FAERS Safety Report 5606117-8 (Version None)
Quarter: 2008Q1

REPORT INFORMATION
  Report Type: 
  Country: None (occurrence: None)
  Receive Date: 20080123
  Receipt Date: 20080108
  Transmission Date: 20080703
  Serious: Yes (Death, Hospitalization, Other)
  Sender: FDA-Public Use
  Company Number: 100#08#2008-00289

PATIENT
  Age: 60 Year
  Sex: Male

DRUGS (4)
  1. PHENYTOIN [Suspect]
     Indication: EPILEPSY
     Dosage: 150 MG B.I.D.
  2. VALPROIC ACID [Concomitant]
  3. PROPOFOL [Concomitant]
  4. MIDAZOLAM HCL [Concomitant]

REACTIONS (6)
  - COMA [None]
  - DRUG TOXICITY [None]
  - HYPOALBUMINAEMIA [None]
  - METABOLIC DISORDER [None]
  - MULTI-ORGAN FAILURE [None]
  - NO THERAPEUTIC RESPONSE [None]
